FAERS Safety Report 4578275-8 (Version None)
Quarter: 2005Q1

REPORT INFORMATION
  Report Type: 
  Country: None (occurrence: None)
  Receive Date: 20050209
  Receipt Date: 20050126
  Transmission Date: 20050727
  Serious: Yes (Hospitalization)
  Sender: FDA-Public Use
  Company Number: US-2005-000304

PATIENT
  Age: 22 Year
  Sex: Female

DRUGS (1)
  1. MIRENA [Suspect]
     Indication: CONTRACEPTION
     Dosage: 20 ?G/DAY, CONT, INTRA-UTERINE
     Route: 015
     Dates: start: 20040831, end: 20041116

REACTIONS (11)
  - ANOREXIA [None]
  - DRUG INEFFECTIVE [None]
  - ENDOMETRITIS [None]
  - IUCD COMPLICATION [None]
  - LETHARGY [None]
  - MALAISE [None]
  - NEPHROLITHIASIS [None]
  - OVARIAN CYST [None]
  - PAIN [None]
  - PELVIC PAIN [None]
  - UTERINE INFECTION [None]
